FAERS Safety Report 22219302 (Version 1)
Quarter: 2023Q2

REPORT INFORMATION
  Report Type: Spontaneous
  Country: CA (occurrence: CA)
  Receive Date: 20230417
  Receipt Date: 20230417
  Transmission Date: 20230721
  Serious: Yes (Other)
  Sender: FDA-Public Use
  Company Number: CA-BAYER-2022A074313

PATIENT
  Age: 89 Year
  Sex: Male
  Weight: 71 kg

DRUGS (3)
  1. RIVAROXABAN [Interacting]
     Active Substance: RIVAROXABAN
     Indication: Atrial fibrillation
     Dosage: 20 MG, QD
     Route: 048
  2. DILTIAZEM [Concomitant]
     Active Substance: DILTIAZEM
     Dosage: UNK
  3. TAMSULOSIN [Concomitant]
     Active Substance: TAMSULOSIN
     Dosage: UNK

REACTIONS (2)
  - Nocturia [Recovered/Resolved]
  - Drug interaction [Unknown]
